FAERS Safety Report 12986668 (Version 1)
Quarter: 2016Q4

REPORT INFORMATION
  Report Type: Spontaneous
  Country: IT (occurrence: IT)
  Receive Date: 20161130
  Receipt Date: 20161130
  Transmission Date: 20170207
  Serious: Yes (Life-Threatening)
  Sender: FDA-Public Use
  Company Number: IT-PFIZER INC-2016552949

PATIENT
  Age: 78 Year
  Sex: Female

DRUGS (1)
  1. ECALTA [Suspect]
     Active Substance: ANIDULAFUNGIN
     Indication: CANDIDA SEPSIS
     Dosage: 100 MG, DAILY
     Route: 042
     Dates: start: 20161115, end: 20161117

REACTIONS (3)
  - Acute respiratory failure [Recovered/Resolved]
  - Hypertension [Recovered/Resolved]
  - Bronchospasm [Recovered/Resolved]

NARRATIVE: CASE EVENT DATE: 20161117
